FAERS Safety Report 20747188 (Version 2)
Quarter: 2022Q2

REPORT INFORMATION
  Report Type: Report from Study
  Country: JP (occurrence: JP)
  Receive Date: 20220425
  Receipt Date: 20220505
  Transmission Date: 20220721
  Serious: Yes (Hospitalization, Other)
  Sender: FDA-Public Use
  Company Number: JP-ONO-2022JP006788

PATIENT
  Age: 72 Year
  Sex: Female
  Weight: 42.5 kg

DRUGS (27)
  1. NIVOLUMAB [Suspect]
     Active Substance: NIVOLUMAB
     Indication: Pancreatic carcinoma
     Dosage: FORM OF ADMIN: INJECTION-, INTRAVENOUS ADMINISTRATION OVER 30 MINUTES; RECENT DOSE: 01-APR-2022
     Route: 041
     Dates: start: 20220304
  2. NIVOLUMAB [Suspect]
     Active Substance: NIVOLUMAB
  3. ABRAXANE [Suspect]
     Active Substance: PACLITAXEL
     Indication: Pancreatic carcinoma
     Dosage: 125 MG/M2, 3 WEEKS CONSECUTIVE ADMINISTRATION 1 WEEK OFF?RECENT DOSE ON 08-APR-2022
     Route: 041
     Dates: start: 20220304
  4. ABRAXANE [Suspect]
     Active Substance: PACLITAXEL
  5. GEMCITABINE [Suspect]
     Active Substance: GEMCITABINE
     Indication: Pancreatic carcinoma
     Dosage: 1000 MG/M2, 3 WEEKS CONSECUTIVE ADMINISTRATION 1 WEEK OFF?RECENT DOSE ON 08-APR-2022
     Route: 041
     Dates: start: 20220304
  6. GEMCITABINE [Suspect]
     Active Substance: GEMCITABINE
  7. BMS-986310 [Suspect]
     Active Substance: BMS-986310
     Indication: Pancreatic carcinoma
     Route: 048
     Dates: start: 20220304, end: 20220307
  8. BMS-986310 [Suspect]
     Active Substance: BMS-986310
     Dosage: BEFORE BREAKFAST
     Route: 048
     Dates: start: 20220323, end: 20220404
  9. BMS-986310 [Suspect]
     Active Substance: BMS-986310
     Dosage: BEFORE BREAKFAST
     Route: 048
     Dates: start: 20220408, end: 20220414
  10. MIYA-BM [Concomitant]
     Active Substance: CLOSTRIDIUM BUTYRICUM SPORES STRAIN M-55
     Indication: Prophylaxis against diarrhoea
     Dosage: 20 MG, Q8H, AFTER EACH MEAL
     Route: 048
     Dates: start: 20220306
  11. MIYA-BM [Concomitant]
     Active Substance: CLOSTRIDIUM BUTYRICUM SPORES STRAIN M-55
  12. MIYA-BM [Concomitant]
     Active Substance: CLOSTRIDIUM BUTYRICUM SPORES STRAIN M-55
  13. SENNOSIDES A AND B [Concomitant]
     Active Substance: SENNOSIDES A AND B
     Indication: Constipation
     Dosage: 12 MG, AT THE TIME OF CONSTIPATION
     Route: 065
     Dates: start: 20220306, end: 20220306
  14. CALONAL [Concomitant]
     Active Substance: ACETAMINOPHEN
     Indication: Abdominal pain
     Dosage: 500 MG, AT THE TIME OF PAIN
     Route: 048
     Dates: start: 20220306
  15. CALONAL [Concomitant]
     Active Substance: ACETAMINOPHEN
  16. CALONAL [Concomitant]
     Active Substance: ACETAMINOPHEN
  17. MAGNESIUM OXIDE [Concomitant]
     Active Substance: MAGNESIUM OXIDE
     Indication: Constipation
     Dosage: 250 MG, Q8H, AFTER EACH MEAL
     Route: 048
     Dates: start: 20220305, end: 20220307
  18. LINZESS [Concomitant]
     Active Substance: LINACLOTIDE
     Indication: Constipation
     Dosage: 0.25 MG, EVERYDAY, BEFORE BREAKFAST
     Route: 048
     Dates: start: 20220307, end: 20220307
  19. LINZESS [Concomitant]
     Active Substance: LINACLOTIDE
  20. LINZESS [Concomitant]
     Active Substance: LINACLOTIDE
  21. NEXIUM [Concomitant]
     Active Substance: ESOMEPRAZOLE MAGNESIUM
     Indication: Pancreatitis
     Dosage: 20 MG, EVERYDAY, AFTER BREAKFAST
     Route: 048
     Dates: start: 20220306
  22. BRIMONIDINE TARTRATE\BRINZOLAMIDE [Concomitant]
     Active Substance: BRIMONIDINE TARTRATE\BRINZOLAMIDE
     Indication: Glaucoma
     Dosage: 1 DROP, Q12H, BOTH EYES
     Route: 047
  23. BRIMONIDINE TARTRATE\BRINZOLAMIDE [Concomitant]
     Active Substance: BRIMONIDINE TARTRATE\BRINZOLAMIDE
  24. BRIMONIDINE TARTRATE\BRINZOLAMIDE [Concomitant]
     Active Substance: BRIMONIDINE TARTRATE\BRINZOLAMIDE
  25. CARTEOLOL HYDROCHLORIDE\LATANOPROST [Concomitant]
     Active Substance: CARTEOLOL HYDROCHLORIDE\LATANOPROST
     Indication: Glaucoma
     Dosage: 1 DROP, QD, BOTH EYES
     Route: 047
  26. CARTEOLOL HYDROCHLORIDE\LATANOPROST [Concomitant]
     Active Substance: CARTEOLOL HYDROCHLORIDE\LATANOPROST
  27. CARTEOLOL HYDROCHLORIDE\LATANOPROST [Concomitant]
     Active Substance: CARTEOLOL HYDROCHLORIDE\LATANOPROST

REACTIONS (2)
  - Pancreatitis [Recovering/Resolving]
  - Febrile neutropenia [Recovered/Resolved]

NARRATIVE: CASE EVENT DATE: 20220307
